FAERS Safety Report 5162859-2 (Version None)
Quarter: 2006Q4

REPORT INFORMATION
  Report Type: 
  Country: None (occurrence: None)
  Receive Date: 20061201
  Receipt Date: 20061018
  Transmission Date: 20070319
  Serious: Yes (Hospitalization)
  Sender: FDA-Public Use
  Company Number: IE-GLAXOSMITHKLINE-B0443492A

PATIENT
  Age: 15 Year
  Sex: Female

DRUGS (2)
  1. AUGMENTIN '125' [Suspect]
     Indication: TONSILLITIS
     Dates: start: 20061017, end: 20061017
  2. NO CONCURRENT MEDICATION [Concomitant]

REACTIONS (13)
  - ANAPHYLACTIC REACTION [None]
  - ASTHENIA [None]
  - DIZZINESS [None]
  - EYE SWELLING [None]
  - HYPERSENSITIVITY [None]
  - HYPOTENSION [None]
  - LIP SWELLING [None]
  - NAUSEA [None]
  - PARAESTHESIA [None]
  - PHARMACEUTICAL PRODUCT COMPLAINT [None]
  - RASH [None]
  - TACHYCARDIA [None]
  - VOMITING [None]
